FAERS Safety Report 21858095 (Version 1)
Quarter: 2023Q1

REPORT INFORMATION
  Report Type: Spontaneous
  Country: FR (occurrence: FR)
  Receive Date: 20230113
  Receipt Date: 20230113
  Transmission Date: 20230417
  Serious: Yes (Hospitalization)
  Sender: FDA-Public Use
  Company Number: None

PATIENT
  Age: 48 Year
  Sex: Male

DRUGS (8)
  1. BUPRENORPHINE [Suspect]
     Active Substance: BUPRENORPHINE
     Dosage: NR
     Dates: start: 2003
  2. OXAZEPAM [Suspect]
     Active Substance: OXAZEPAM
     Dosage: NR
  3. COCAINE [Suspect]
     Active Substance: COCAINE
     Dosage: NR
     Dates: start: 2008
  4. NICOTINE\TOBACCO LEAF [Suspect]
     Active Substance: NICOTINE\TOBACCO LEAF
     Dosage: NR
     Route: 055
     Dates: start: 1988
  5. ALCOHOL [Suspect]
     Active Substance: ALCOHOL
     Dosage: NR
     Route: 048
     Dates: start: 1989
  6. UNSPECIFIED INGREDIENT [Suspect]
     Active Substance: UNSPECIFIED INGREDIENT
     Dosage: NR
     Route: 045
     Dates: start: 2008
  7. IMOVANE [Suspect]
     Active Substance: ZOPICLONE
     Dosage: NR
  8. CANNABIS SATIVA SUBSP. INDICA TOP [Suspect]
     Active Substance: CANNABIS SATIVA SUBSP. INDICA TOP
     Dosage: NR

REACTIONS (3)
  - Miosis [Not Recovered/Not Resolved]
  - Behavioural addiction [Not Recovered/Not Resolved]
  - Drug abuse [Not Recovered/Not Resolved]

NARRATIVE: CASE EVENT DATE: 20080101
